FAERS Safety Report 8061175-9 (Version None)
Quarter: 2012Q1

REPORT INFORMATION
  Report Type: 
  Country: None (occurrence: None)
  Receive Date: 20120120
  Receipt Date: 20110628
  Transmission Date: 20120608
  Serious: No
  Sender: FDA-Public Use
  Company Number: US-ALLERGAN-1108580US

PATIENT
  Age: 62 Year
  Sex: Female

DRUGS (1)
  1. RESTASIS [Suspect]
     Indication: PRODUCT USED FOR UNKNOWN INDICATION
     Dosage: 1 GTT, UNKNOWN
     Route: 047
     Dates: start: 20110101

REACTIONS (4)
  - EYE IRRITATION [None]
  - OCULAR HYPERAEMIA [None]
  - LACRIMATION INCREASED [None]
  - EYELID OEDEMA [None]
